FAERS Safety Report 22660769 (Version 1)
Quarter: 2023Q2

REPORT INFORMATION
  Report Type: Spontaneous
  Country: CZ (occurrence: CZ)
  Receive Date: 20230630
  Receipt Date: 20230630
  Transmission Date: 20230722
  Serious: Yes (Other)
  Sender: FDA-Public Use
  Company Number: CZ-IPSEN Group, Research and Development-2023-15168

PATIENT
  Age: 34 Year
  Sex: Male

DRUGS (1)
  1. LANREOTIDE ACETATE [Suspect]
     Active Substance: LANREOTIDE ACETATE
     Indication: Neuroendocrine tumour
     Route: 058
     Dates: start: 201608

REACTIONS (2)
  - Lymphadenopathy [Unknown]
  - Lymphadenectomy [Unknown]

NARRATIVE: CASE EVENT DATE: 20170901
